FAERS Safety Report 10528878 (Version 2)
Quarter: 2014Q4

REPORT INFORMATION
  Report Type: Report from Study
  Country: US (occurrence: US)
  Receive Date: 20141020
  Receipt Date: 20141020
  Transmission Date: 20150528
  Serious: Yes (Hospitalization)
  Sender: FDA-Public Use
  Company Number: US-EXELIXIS-CABO-14004288

PATIENT
  Age: 56 Year
  Sex: Female

DRUGS (15)
  1. LORAZEPAM. [Concomitant]
     Active Substance: LORAZEPAM
  2. OXYCODONE [Concomitant]
     Active Substance: OXYCODONE
  3. ONDANSETRON [Concomitant]
     Active Substance: ONDANSETRON
  4. TUMS [Concomitant]
     Active Substance: CALCIUM CARBONATE
  5. INLYTA [Concomitant]
     Active Substance: AXITINIB
  6. TYLENOL [Concomitant]
     Active Substance: ACETAMINOPHEN
  7. CABOZANTINIB [Suspect]
     Active Substance: CABOZANTINIB
     Dosage: 80 MG, QD
     Route: 048
     Dates: start: 20140808, end: 20140821
  8. COMPAZINE [Concomitant]
     Active Substance: PROCHLORPERAZINE MALEATE
  9. CABOZANTINIB [Suspect]
     Active Substance: CABOZANTINIB
     Dosage: 60 MG, QD
     Route: 048
     Dates: start: 20140822, end: 201410
  10. BETAMETHASONE DIPROPIONATE. [Concomitant]
     Active Substance: BETAMETHASONE DIPROPIONATE
  11. SYNTHROID [Concomitant]
     Active Substance: LEVOTHYROXINE SODIUM
  12. ALBUTEROL. [Concomitant]
     Active Substance: ALBUTEROL
  13. CABOZANTINIB [Suspect]
     Active Substance: CABOZANTINIB
     Indication: RENAL CANCER
     Dosage: 60 MG, QD
     Route: 048
     Dates: start: 20140423, end: 20140807
  14. NISOLDIPINE. [Concomitant]
     Active Substance: NISOLDIPINE
  15. SINUS HEADACHE TABLETS [Concomitant]

REACTIONS (9)
  - Memory impairment [Unknown]
  - Vomiting [Unknown]
  - Hypersensitivity [Unknown]
  - Hair colour changes [Unknown]
  - Dry skin [Unknown]
  - Pericardial effusion [Unknown]
  - Fatigue [Unknown]
  - Diarrhoea [Not Recovered/Not Resolved]
  - Off label use [Unknown]

NARRATIVE: CASE EVENT DATE: 201405
